FAERS Safety Report 25549418 (Version 1)
Quarter: 2025Q3

REPORT INFORMATION
  Report Type: Report from Study
  Country: US (occurrence: US)
  Receive Date: 20250714
  Receipt Date: 20250714
  Transmission Date: 20251020
  Serious: Yes (Other)
  Sender: SANDOZ
  Company Number: US-SANDOZ-SDZ2025US049014

PATIENT
  Sex: Female

DRUGS (1)
  1. HYRIMOZ [Suspect]
     Active Substance: ADALIMUMAB-ADAZ
     Indication: Rheumatoid arthritis
     Dosage: 40 MG Q2W
     Route: 058
     Dates: start: 202505

REACTIONS (3)
  - Vein disorder [Unknown]
  - Endovenous ablation [Unknown]
  - Phlebectomy [Unknown]

NARRATIVE: CASE EVENT DATE: 20250101
